FAERS Safety Report 10919195 (Version 1)
Quarter: 2015Q1

REPORT INFORMATION
  Report Type: Spontaneous
  Country: MX (occurrence: MX)
  Receive Date: 20150316
  Receipt Date: 20150316
  Transmission Date: 20150721
  Serious: Yes (Hospitalization)
  Sender: FDA-Public Use
  Company Number: MX-MYLANLABS-2015M1008243

PATIENT

DRUGS (2)
  1. CLONAZEPAM. [Suspect]
     Active Substance: CLONAZEPAM
     Dosage: 50 MG OF LIQUID
     Route: 048
  2. POTASSIUM CHLORIDE. [Suspect]
     Active Substance: POTASSIUM CHLORIDE
     Dosage: EXTENDED RELEASE;100 TABLETS; 1000 MEQ
     Route: 048

REACTIONS (6)
  - Intentional overdose [Recovering/Resolving]
  - Sinus tachycardia [Recovering/Resolving]
  - Metabolic acidosis [Recovering/Resolving]
  - Bezoar [Recovered/Resolved]
  - Suicide attempt [Recovering/Resolving]
  - Hyperlactacidaemia [Recovering/Resolving]
